FAERS Safety Report 12215261 (Version 1)
Quarter: 2016Q1

REPORT INFORMATION
  Report Type: Spontaneous
  Country: US (occurrence: US)
  Receive Date: 20160328
  Receipt Date: 20160328
  Transmission Date: 20160526
  Serious: No
  Sender: FDA-Public Use
  Company Number: US-PFIZER INC-2016138596

PATIENT
  Sex: Female

DRUGS (2)
  1. QUILLIVANT XR [Suspect]
     Active Substance: METHYLPHENIDATE HYDROCHLORIDE
     Dosage: 5 MG, 1X/DAY
  2. QUILLIVANT XR [Suspect]
     Active Substance: METHYLPHENIDATE HYDROCHLORIDE
     Dosage: 25 MG, UNK

REACTIONS (9)
  - Drug intolerance [Unknown]
  - Feeling abnormal [Unknown]
  - Poor quality drug administered [Unknown]
  - Influenza [Unknown]
  - Drug dose omission [Recovered/Resolved]
  - Product odour abnormal [Unknown]
  - Intentional product use issue [Unknown]
  - Product preparation error [Unknown]
  - Product colour issue [Unknown]

NARRATIVE: CASE EVENT DATE: 201602
